FAERS Safety Report 8283928-4 (Version None)
Quarter: 2012Q2

REPORT INFORMATION
  Report Type: 
  Country: None (occurrence: None)
  Receive Date: 20120413
  Receipt Date: 20120411
  Transmission Date: 20120825
  Serious: No
  Sender: FDA-Public Use
  Company Number: US-B.I. PHARMACEUTICALS,INC./RIDGEFIELD-2012-BP-06852BP

PATIENT
  Age: 74 Year
  Sex: Male

DRUGS (9)
  1. HYDROCODONE BITARTRATE [Concomitant]
     Indication: PAIN
     Dates: start: 20090101
  2. SIMVASTATIN [Concomitant]
  3. GLYPERIDE [Concomitant]
  4. BENAZEPRIL HYDROCHLORIDE [Concomitant]
  5. ACTOS [Concomitant]
  6. METFORMIN HCL [Concomitant]
  7. PRADAXA [Suspect]
     Indication: ATRIAL FIBRILLATION
     Dosage: 300 MG
     Route: 048
     Dates: start: 20111101, end: 20120408
  8. MULTAQ [Concomitant]
  9. METOCLOPRAMIDE [Concomitant]

REACTIONS (3)
  - GROIN PAIN [None]
  - HAEMATURIA [None]
  - NEPHROLITHIASIS [None]
